FAERS Safety Report 12927622 (Version 1)
Quarter: 2016Q4

REPORT INFORMATION
  Report Type: Spontaneous
  Country: US (occurrence: US)
  Receive Date: 20161109
  Receipt Date: 20161109
  Transmission Date: 20170207
  Serious: No
  Sender: FDA-Public Use
  Company Number: None

PATIENT
  Age: 47 Year
  Sex: Female
  Weight: 60.75 kg

DRUGS (4)
  1. MODAFANIL 200MG TAB [Suspect]
     Active Substance: MODAFINIL
     Indication: SHIFT WORK DISORDER
     Dosage: ?          QUANTITY:1 TABLET(S);?
     Route: 048
     Dates: start: 20160807, end: 20161108
  2. ONE-A-DAY PETIT DOSE MVI [Concomitant]
  3. COLACE [Concomitant]
     Active Substance: DOCUSATE SODIUM
  4. TAMOXIFEN [Concomitant]
     Active Substance: TAMOXIFEN

REACTIONS (4)
  - Drug effect decreased [None]
  - Product physical issue [None]
  - Product substitution issue [None]
  - Somnolence [None]

NARRATIVE: CASE EVENT DATE: 20160830
